FAERS Safety Report 25475148 (Version 1)
Quarter: 2025Q2

REPORT INFORMATION
  Report Type: Spontaneous
  Country: HU (occurrence: HU)
  Receive Date: 20250624
  Receipt Date: 20250624
  Transmission Date: 20250717
  Serious: Yes (Hospitalization)
  Sender: MYLAN
  Company Number: HU-ROCHE-10000302137

PATIENT

DRUGS (4)
  1. OXALIPLATIN [Suspect]
     Active Substance: OXALIPLATIN
     Indication: Product used for unknown indication
  2. CAPECITABINE [Suspect]
     Active Substance: CAPECITABINE
     Indication: Product used for unknown indication
  3. PREDNISONE [Concomitant]
     Active Substance: PREDNISONE
  4. BUDESONIDE [Concomitant]
     Active Substance: BUDESONIDE

REACTIONS (6)
  - Electrolyte imbalance [Unknown]
  - Diarrhoea [Unknown]
  - Dehydration [Unknown]
  - Vomiting [Unknown]
  - Abdominal pain [Unknown]
  - Urticaria [Unknown]
